FAERS Safety Report 25883105 (Version 3)
Quarter: 2025Q4

REPORT INFORMATION
  Report Type: Report from Study
  Country: US (occurrence: US)
  Receive Date: 20251006
  Receipt Date: 20251223
  Transmission Date: 20260118
  Serious: Yes (Other)
  Sender: INSMED
  Company Number: US-INSMED, INC.-2025-01754-US

PATIENT
  Sex: Female

DRUGS (4)
  1. ARIKAYCE [Suspect]
     Active Substance: AMIKACIN
     Indication: Mycobacterium avium complex infection
     Dosage: INHALE 590MG ONCE DAILY ON MONDAY, WEDNESDAY, AND FRIDAY AS DIRECTED
     Route: 055
     Dates: start: 20250515, end: 2025
  2. ARIKAYCE [Suspect]
     Active Substance: AMIKACIN
     Dosage: 590 MILLIGRAM, QD
     Route: 055
     Dates: start: 2025, end: 2025
  3. ARIKAYCE [Suspect]
     Active Substance: AMIKACIN
     Dosage: 590 MILLIGRAM, QOD
     Route: 055
     Dates: start: 2025, end: 2025
  4. ALBUTEROL SULFATE [Concomitant]
     Active Substance: ALBUTEROL SULFATE
     Indication: Product used for unknown indication
     Dosage: UNK, UNK
     Route: 065

REACTIONS (11)
  - Choking [Unknown]
  - Hypertension [Unknown]
  - Muscular weakness [Not Recovered/Not Resolved]
  - Retching [Unknown]
  - Headache [Unknown]
  - Off label use [Unknown]
  - Accidental underdose [Unknown]
  - Wrong technique in product usage process [Unknown]
  - Drug dose omission by device [Unknown]
  - Therapy interrupted [Unknown]
  - Device issue [Unknown]

NARRATIVE: CASE EVENT DATE: 20250101
